FAERS Safety Report 13339037 (Version 2)
Quarter: 2017Q1

REPORT INFORMATION
  Report Type: Spontaneous
  Country: US (occurrence: US)
  Receive Date: 20170315
  Receipt Date: 20170322
  Transmission Date: 20170428
  Serious: Yes (Disabling, Other)
  Sender: FDA-Public Use
  Company Number: US-AMGEN-USASP2017036944

PATIENT
  Age: 58 Year
  Sex: Female
  Weight: 52.15 kg

DRUGS (23)
  1. ACYCLOVIR. [Concomitant]
     Active Substance: ACYCLOVIR
     Indication: ORAL PAIN
     Dosage: UNK
     Dates: start: 201501
  2. ALPRAZOLAM. [Concomitant]
     Active Substance: ALPRAZOLAM
     Dosage: 1 MG, TID
     Route: 048
     Dates: start: 20151012
  3. VALACYCLOVIR [Concomitant]
     Active Substance: VALACYCLOVIR HYDROCHLORIDE
     Dosage: 1 UNK, QD
     Route: 048
     Dates: start: 20160817
  4. AMLODIPINE [Concomitant]
     Active Substance: AMLODIPINE BESYLATE
     Indication: HYPERTENSION
     Dosage: 5 MG, UNK
     Route: 048
     Dates: start: 2007
  5. DEPLIN [Concomitant]
     Active Substance: LEVOMEFOLATE CALCIUM
     Dosage: 1 DF, QD
     Route: 048
     Dates: start: 20151113
  6. NEXIUM [Concomitant]
     Active Substance: ESOMEPRAZOLE MAGNESIUM
     Dosage: 20 MG, QD
     Route: 048
     Dates: start: 20150817
  7. ZOVIRAX [Concomitant]
     Active Substance: ACYCLOVIR
     Dosage: 5 %, 5 TIMES EVERY DAY
     Route: 061
  8. DEXILANT [Concomitant]
     Active Substance: DEXLANSOPRAZOLE
     Dosage: 30 MG, QD
     Route: 048
     Dates: start: 20160209
  9. ROBITUSSIN (GUAIFENESIN) [Concomitant]
     Active Substance: GUAIFENESIN
     Indication: COUGH
     Dosage: 10 ML, Q6H
     Route: 048
     Dates: start: 20160408
  10. BACTRIM DS [Concomitant]
     Active Substance: SULFAMETHOXAZOLE\TRIMETHOPRIM
     Dosage: 160 MG, Q12H
     Route: 048
     Dates: start: 20160926
  11. BENAZEPRIL [Concomitant]
     Active Substance: BENAZEPRIL HYDROCHLORIDE
     Indication: HYPERTENSION
     Dosage: 20 MG, QD
     Route: 048
     Dates: start: 20150817
  12. IMITREX [Concomitant]
     Active Substance: SUMATRIPTAN SUCCINATE
     Indication: HEADACHE
     Dosage: 50 MG, UNK
     Route: 048
     Dates: start: 20150417
  13. CLONAZEPAM. [Concomitant]
     Active Substance: CLONAZEPAM
     Indication: PANIC ATTACK
     Dosage: 0.5 MG, AS NECESSARY
     Dates: start: 20151209
  14. CLONAPINE [Concomitant]
     Indication: ANXIETY
     Dosage: UNK UNK, AS NECESSARY
  15. NASONEX [Concomitant]
     Active Substance: MOMETASONE FUROATE
     Dosage: UNK UNK, QD
     Route: 045
     Dates: start: 20160411
  16. PROLIA [Suspect]
     Active Substance: DENOSUMAB
     Indication: OSTEOPOROSIS
     Dosage: 60 MG, Q6MO
     Route: 058
     Dates: start: 20160120
  17. IMITREX [Concomitant]
     Active Substance: SUMATRIPTAN SUCCINATE
     Indication: MIGRAINE
  18. AMLODIPINE BESYLATE. [Concomitant]
     Active Substance: AMLODIPINE BESYLATE
     Dosage: 5 MG, QD
     Route: 048
  19. CALCIUM [Concomitant]
     Active Substance: CALCIUM
     Dosage: UNK
     Dates: start: 2015
  20. MAGNESIUM [Concomitant]
     Active Substance: MAGNESIUM
     Dosage: UNK
     Dates: start: 2015
  21. VOLTAREN [Concomitant]
     Active Substance: DICLOFENAC SODIUM
     Dosage: 1 %, QID
     Route: 061
     Dates: start: 20150127
  22. CYCLOBENZAPRINE [Concomitant]
     Active Substance: CYCLOBENZAPRINE
     Indication: MUSCLE SPASMS
     Dosage: 5 MG, TID
     Route: 048
     Dates: start: 20160805
  23. HCTZ [Concomitant]
     Active Substance: HYDROCHLOROTHIAZIDE
     Indication: HYPERTENSION
     Dosage: 25 MG, UNK
     Route: 048

REACTIONS (45)
  - Injection site swelling [Recovering/Resolving]
  - Pruritus generalised [Recovering/Resolving]
  - General physical health deterioration [Recovering/Resolving]
  - Depression [Recovering/Resolving]
  - Pain [Recovering/Resolving]
  - Vulvovaginal burning sensation [Unknown]
  - Gastrooesophageal reflux disease [Recovering/Resolving]
  - Osteitis [Recovering/Resolving]
  - Muscular weakness [Recovering/Resolving]
  - Dry mouth [Unknown]
  - Malaise [Unknown]
  - Extraocular muscle paresis [Recovering/Resolving]
  - Sjogren^s syndrome [Not Recovered/Not Resolved]
  - Strabismus [Recovering/Resolving]
  - Hypersensitivity [Not Recovered/Not Resolved]
  - Insomnia [Recovering/Resolving]
  - Fatigue [Unknown]
  - Weight increased [Not Recovered/Not Resolved]
  - Gingival disorder [Recovering/Resolving]
  - Skin ulcer [Recovering/Resolving]
  - Facial pain [Recovering/Resolving]
  - Oral herpes [Unknown]
  - Ankle fracture [Recovering/Resolving]
  - Impaired healing [Recovering/Resolving]
  - Swelling face [Recovering/Resolving]
  - Rash [Unknown]
  - Muscle spasms [Not Recovered/Not Resolved]
  - Loose tooth [Recovering/Resolving]
  - Dry eye [Unknown]
  - Bone pain [Recovering/Resolving]
  - Arthralgia [Unknown]
  - Urinary tract infection [Recovering/Resolving]
  - Diarrhoea [Not Recovered/Not Resolved]
  - Rectal fissure [Recovering/Resolving]
  - Anxiety [Recovering/Resolving]
  - Generalised oedema [Recovering/Resolving]
  - Wheezing [Unknown]
  - Myalgia [Not Recovered/Not Resolved]
  - Injection site pain [Recovering/Resolving]
  - Injection site pruritus [Recovering/Resolving]
  - Tinnitus [Recovering/Resolving]
  - Fluid retention [Recovering/Resolving]
  - Skin lesion [Unknown]
  - Dyspnoea [Unknown]
  - Upper respiratory tract infection [Recovering/Resolving]

NARRATIVE: CASE EVENT DATE: 201601
